FAERS Safety Report 16639344 (Version 1)
Quarter: 2019Q3

REPORT INFORMATION
  Report Type: Other
  Country: None (occurrence: US)
  Receive Date: 20190726
  Receipt Date: 20190726
  Transmission Date: 20191004
  Serious: No
  Sender: FDA-Public Use
  Company Number: US-UNIPHARMA LLC-2071372

PATIENT

DRUGS (1)
  1. INFANTS PAIN AND FEVER [Suspect]
     Active Substance: ACETAMINOPHEN

REACTIONS (1)
  - Dyspnoea [Unknown]
